FAERS Safety Report 23899712 (Version 1)
Quarter: 2024Q2

REPORT INFORMATION
  Report Type: Spontaneous
  Country: US (occurrence: None)
  Receive Date: 20240526
  Receipt Date: 20240526
  Transmission Date: 20240716
  Serious: No
  Sender: FDA-Public Use
  Company Number: US-ROCHE-3469726

PATIENT
  Sex: Female

DRUGS (22)
  1. ACTEMRA [Suspect]
     Active Substance: TOCILIZUMAB
     Indication: Rheumatoid arthritis
     Route: 058
  2. ACTEMRA [Suspect]
     Active Substance: TOCILIZUMAB
  3. ALBUTEROL SULFATE [Concomitant]
     Active Substance: ALBUTEROL SULFATE
  4. ALENDRONATE [Concomitant]
     Active Substance: ALENDRONATE SODIUM
  5. ATROVENT HFA [Concomitant]
     Active Substance: IPRATROPIUM BROMIDE
  6. CETIRIZINE HYDROCHLORIDE [Concomitant]
     Active Substance: CETIRIZINE HYDROCHLORIDE
  7. ESCITALOPRAM [Concomitant]
     Active Substance: ESCITALOPRAM OXALATE
  8. FAMOTIDINE [Concomitant]
     Active Substance: FAMOTIDINE
  9. FUROSEMIDE [Concomitant]
     Active Substance: FUROSEMIDE
  10. GABAPENTIN [Concomitant]
     Active Substance: GABAPENTIN
  11. LANTUS SOLOSTAR [Concomitant]
     Active Substance: INSULIN GLARGINE
  12. LOSARTAN POTASSIUM [Concomitant]
     Active Substance: LOSARTAN POTASSIUM
  13. METFORMIN HYDROCHLORIDE [Concomitant]
     Active Substance: METFORMIN HYDROCHLORIDE
  14. MONTELUKAST [Concomitant]
     Active Substance: MONTELUKAST SODIUM
  15. OMEPRAZOLE [Concomitant]
     Active Substance: DONEPEZIL HYDROCHLORIDE\OMEPRAZOLE\OMEPRAZOLE MAGNESIUM
  16. POTASSIUM CHLORIDE [Concomitant]
     Active Substance: POTASSIUM CHLORIDE
  17. PRAVASTATIN [Concomitant]
     Active Substance: PRAVASTATIN
  18. PREDNISONE [Concomitant]
     Active Substance: PREDNISONE
  19. RINVOQ [Concomitant]
     Active Substance: UPADACITINIB
  20. TEMAZEPAM [Concomitant]
     Active Substance: TEMAZEPAM
  21. TRAMADOL HYDROCHLORIDE [Concomitant]
     Active Substance: TRAMADOL HYDROCHLORIDE
  22. TRULICITY [Concomitant]
     Active Substance: DULAGLUTIDE

REACTIONS (2)
  - Peripheral swelling [Not Recovered/Not Resolved]
  - Pain [Not Recovered/Not Resolved]
